FAERS Safety Report 6549145-0 (Version None)
Quarter: 2010Q1

REPORT INFORMATION
  Report Type: 
  Country: None (occurrence: None)
  Receive Date: 20100125
  Receipt Date: 20100120
  Transmission Date: 20100710
  Serious: Yes (Life-Threatening, Hospitalization)
  Sender: FDA-Public Use
  Company Number: CA-SANOFI-AVENTIS-2009SA006299

PATIENT
  Age: 66 Year
  Sex: Female
  Weight: 95 kg

DRUGS (24)
  1. DOCETAXEL [Suspect]
     Route: 041
     Dates: start: 20091109, end: 20091109
  2. BLINDED THERAPY [Suspect]
     Route: 042
     Dates: start: 20091109, end: 20091109
  3. GLYBURIDE [Concomitant]
     Dates: start: 19990501
  4. METFORMIN [Concomitant]
     Dates: start: 19990501
  5. CANDESARTAN CILEXETIL [Concomitant]
     Indication: HYPERTENSION
     Dates: start: 19990501
  6. ROSUVASTATIN [Concomitant]
     Dates: start: 20000101
  7. CALCIUM [Concomitant]
     Dates: start: 20000101
  8. VITAMIN D [Concomitant]
     Dates: start: 20000101
  9. SYNTHROID [Concomitant]
     Indication: HYPOTHYROIDISM
     Dates: start: 20050101
  10. FOSAMAX [Concomitant]
     Indication: OSTEOARTHRITIS
     Dates: start: 20050101
  11. FERROUS SULFATE TAB [Concomitant]
     Dates: start: 20090205
  12. ASPIRIN [Concomitant]
     Dates: start: 20090701
  13. BISOPROLOL FUMARATE [Concomitant]
     Dates: start: 20090601
  14. JANUVIA [Concomitant]
     Dates: start: 20090701
  15. ENOXAPARIN SODIUM [Concomitant]
     Dates: start: 20090910
  16. ACETAMINOPHEN [Concomitant]
     Dates: start: 00091001
  17. SWINE FLU VACCINE, MONOVALENT [Concomitant]
     Indication: PROPHYLAXIS
     Dates: start: 20091105, end: 20091105
  18. DEXAMETHASONE [Concomitant]
     Dates: start: 20091108, end: 20091110
  19. STEMETIL [Concomitant]
     Dates: start: 20091109
  20. INSULIN [Concomitant]
     Dates: start: 20091109, end: 20091110
  21. NPH INSULIN [Concomitant]
     Dates: start: 20091110
  22. FLUCONAZOLE [Concomitant]
     Dates: start: 20091119, end: 20091120
  23. ALL OTHER THERAPEUTIC PRODUCTS [Concomitant]
     Dates: start: 20091119, end: 20091120
  24. MAGNESIUM [Concomitant]
     Dates: end: 20091124

REACTIONS (5)
  - CATHETER SITE CELLULITIS [None]
  - DIARRHOEA [None]
  - FALL [None]
  - GENERAL PHYSICAL HEALTH DETERIORATION [None]
  - HYPOKALAEMIA [None]
